FAERS Safety Report 7437228-2 (Version None)
Quarter: 2011Q2

REPORT INFORMATION
  Report Type: 
  Country: None (occurrence: None)
  Receive Date: 20110426
  Receipt Date: 20110420
  Transmission Date: 20111010
  Serious: Yes (Other)
  Sender: FDA-Public Use
  Company Number: GB-TEVA-277524ISR

PATIENT
  Age: 23 Year
  Sex: Male
  Weight: 67 kg

DRUGS (1)
  1. TEMOZOLOMIDE [Suspect]
     Indication: BRAIN NEOPLASM
     Route: 048
     Dates: start: 20110121

REACTIONS (1)
  - MANIA [None]
